FAERS Safety Report 8541593-2 (Version None)
Quarter: 2012Q3

REPORT INFORMATION
  Report Type: 
  Country: None (occurrence: None)
  Receive Date: 20120726
  Receipt Date: 20120718
  Transmission Date: 20120928
  Serious: Yes (Death)
  Sender: FDA-Public Use
  Company Number: DE-ROCHE-1091889

PATIENT
  Sex: Female

DRUGS (6)
  1. MABTHERA [Suspect]
     Dates: start: 20080922
  2. MABTHERA [Suspect]
     Dates: start: 20090401
  3. MABTHERA [Suspect]
     Dates: start: 20091016
  4. AZATIOPRIN [Concomitant]
     Indication: RHEUMATOID ARTHRITIS
     Dates: start: 20050401, end: 20100601
  5. MABTHERA [Suspect]
     Indication: RHEUMATOID ARTHRITIS
     Dates: start: 20071210
  6. METHOTREXATE [Concomitant]
     Indication: RHEUMATOID ARTHRITIS
     Route: 048
     Dates: start: 20030501, end: 20100601

REACTIONS (2)
  - METASTATIC BRONCHIAL CARCINOMA [None]
  - PLEURAL EFFUSION [None]
